FAERS Safety Report 14161347 (Version 1)
Quarter: 2017Q4

REPORT INFORMATION
  Report Type: Spontaneous
  Country: SE (occurrence: SE)
  Receive Date: 20171106
  Receipt Date: 20171106
  Transmission Date: 20180321
  Serious: Yes (Hospitalization)
  Sender: FDA-Public Use
  Company Number: SE-SUNOVION-2017SUN004785

PATIENT

DRUGS (2)
  1. LATUDA [Suspect]
     Active Substance: LURASIDONE HYDROCHLORIDE
     Indication: SCHIZOPHRENIA
     Dosage: 74-148 MG, UNK
     Route: 048
  2. ABILIFY MAINTENA [Concomitant]
     Active Substance: ARIPIPRAZOLE
     Indication: SCHIZOPHRENIA

REACTIONS (8)
  - Delusion [Unknown]
  - Mania [Unknown]
  - Energy increased [Unknown]
  - Logorrhoea [Unknown]
  - Drug dose omission [Unknown]
  - Euphoric mood [Unknown]
  - Abnormal behaviour [Unknown]
  - Treatment noncompliance [Unknown]
